FAERS Safety Report 5799844-3 (Version None)
Quarter: 2008Q2

REPORT INFORMATION
  Report Type: 
  Country: None (occurrence: None)
  Receive Date: 20080601
  Receipt Date: 20080201
  Transmission Date: 20081010
  Serious: No
  Sender: FDA-Public Use
  Company Number: US200802000409

PATIENT
  Age: 58 Year
  Sex: Male
  Weight: 104.3 kg

DRUGS (4)
  1. BYETTA [Suspect]
     Indication: TYPE 2 DIABETES MELLITUS
     Dosage: 5 UG, 3/D, SUBCUTANEOUS ; 10 UG, 3/D, SUBCUTANEOUS
     Route: 058
     Dates: start: 20060101, end: 20080126
  2. BYETTA [Suspect]
     Indication: TYPE 2 DIABETES MELLITUS
     Dosage: 5 UG, 3/D, SUBCUTANEOUS ; 10 UG, 3/D, SUBCUTANEOUS
     Route: 058
     Dates: start: 20080127
  3. ZETIA [Concomitant]
  4. TRICOR [Concomitant]

REACTIONS (4)
  - GASTROOESOPHAGEAL REFLUX DISEASE [None]
  - NAUSEA [None]
  - OVERDOSE [None]
  - VOMITING [None]
